FAERS Safety Report 13774532 (Version 1)
Quarter: 2017Q3

REPORT INFORMATION
  Report Type: Spontaneous
  Country: US (occurrence: US)
  Receive Date: 20170720
  Receipt Date: 20170720
  Transmission Date: 20171127
  Serious: Yes (Other)
  Sender: FDA-Public Use
  Company Number: None

PATIENT
  Age: 38 Year
  Sex: Female
  Weight: 72 kg

DRUGS (1)
  1. SUBOXONE [Suspect]
     Active Substance: BUPRENORPHINE HYDROCHLORIDE\NALOXONE HYDROCHLORIDE
     Indication: DRUG USE DISORDER
     Dosage: ?          OTHER DOSE:MG;?DAILY SUBLINGUAL
     Route: 060

REACTIONS (3)
  - Rash maculovesicular [None]
  - Scar [None]
  - Rash macular [None]

NARRATIVE: CASE EVENT DATE: 20170720
